FAERS Safety Report 7364191-5 (Version None)
Quarter: 2011Q1

REPORT INFORMATION
  Report Type: 
  Country: None (occurrence: None)
  Receive Date: 20110321
  Receipt Date: 20100823
  Transmission Date: 20110831
  Serious: Yes (Hospitalization, Other)
  Sender: FDA-Public Use
  Company Number: US-BAYER-201010164NA

PATIENT
  Sex: Female
  Weight: 89 kg

DRUGS (12)
  1. YASMIN [Suspect]
     Indication: PREMENSTRUAL SYNDROME
  2. DOZOL [DIPHENHYDRAMINE HYDROCHLORIDE,PARACETAMOL] [Concomitant]
  3. TYLENOL PM [Concomitant]
     Indication: PAIN
  4. YASMIN [Suspect]
     Indication: PAIN
     Route: 048
     Dates: start: 20050501, end: 20080717
  5. YASMIN [Suspect]
     Indication: MENSTRUATION IRREGULAR
  6. OCELLA [Suspect]
     Indication: CHOLECYSTITIS ACUTE
  7. BENTYL [Concomitant]
  8. OCELLA [Suspect]
     Indication: PAIN
     Dates: start: 20080701, end: 20081001
  9. OCELLA [Suspect]
     Indication: CONTRACEPTION
  10. IBUPROFEN [Concomitant]
  11. ADVIL LIQUI-GELS [Concomitant]
     Indication: PAIN
  12. REGLAN [Concomitant]

REACTIONS (6)
  - NAUSEA [None]
  - CHOLECYSTITIS ACUTE [None]
  - ABDOMINAL PAIN UPPER [None]
  - CHOLELITHIASIS [None]
  - VOMITING [None]
  - PAIN [None]
